FAERS Safety Report 7504198-8 (Version None)
Quarter: 2011Q2

REPORT INFORMATION
  Report Type: 
  Country: None (occurrence: None)
  Receive Date: 20110525
  Receipt Date: 20090817
  Transmission Date: 20111010
  Serious: Yes (Other)
  Sender: FDA-Public Use
  Company Number: US-BAYER-200929973NA

PATIENT
  Age: 38 Year
  Sex: Male
  Weight: 102 kg

DRUGS (10)
  1. VERSED [Concomitant]
     Dosage: UNK
     Dates: start: 20070730
  2. RIFAMPIN [Concomitant]
  3. TRASYLOL [Suspect]
     Indication: CARDIAC ABLATION
     Dosage: 125 ML CARDIOPULMONARY BYPASS PRIME
     Route: 042
     Dates: start: 20070730, end: 20070730
  4. DOBUTAMINE HYDROCHLORIDE [Concomitant]
     Dosage: UNK
     Dates: start: 20070730
  5. TRASYLOL [Suspect]
     Indication: CARDIAC PACEMAKER INSERTION
  6. ENALAPRIL MALEATE [Concomitant]
     Dosage: 10 MG, QD
     Dates: start: 20040101
  7. TRASYLOL [Suspect]
     Indication: SYSTEMIC-PULMONARY ARTERY SHUNT
     Dosage: 1 ML,INITIAL TEST DOSE
     Route: 042
     Dates: start: 20070730, end: 20070730
  8. COUMADIN [Concomitant]
     Dosage: 4 MG EVERY NIGHT X 6 DAYS; 5 MG ON THE 7TH NIGHT EVERY WEEK
     Dates: start: 20030101, end: 20070726
  9. LASIX [Concomitant]
  10. NAFCILLIN [Concomitant]

REACTIONS (14)
  - RENAL INJURY [None]
  - UNEVALUABLE EVENT [None]
  - INJURY [None]
  - RESPIRATORY FAILURE [None]
  - STRESS [None]
  - EMOTIONAL DISTRESS [None]
  - PERONEAL NERVE PALSY [None]
  - RENAL IMPAIRMENT [None]
  - ANXIETY [None]
  - FEAR [None]
  - PAIN [None]
  - ANHEDONIA [None]
  - RENAL FAILURE [None]
  - DEPRESSION [None]
